FAERS Safety Report 6853413-2 (Version None)
Quarter: 2010Q3

REPORT INFORMATION
  Report Type: 
  Country: None (occurrence: None)
  Receive Date: 20100717
  Receipt Date: 20071206
  Transmission Date: 20110219
  Serious: No
  Sender: FDA-Public Use
  Company Number: US-PFIZER INC-2007104015

PATIENT
  Sex: Female
  Weight: 53.5 kg

DRUGS (4)
  1. CHANTIX [Suspect]
     Indication: SMOKING CESSATION THERAPY
     Dates: start: 20071111
  2. MULTI-VITAMINS [Concomitant]
  3. VITAMIN E [Concomitant]
  4. VITAMIN C [Concomitant]

REACTIONS (2)
  - ABNORMAL DREAMS [None]
  - RASH [None]
